FAERS Safety Report 20625915 (Version 1)
Quarter: 2022Q1

REPORT INFORMATION
  Report Type: Spontaneous
  Country: US (occurrence: US)
  Receive Date: 20220323
  Receipt Date: 20220323
  Transmission Date: 20220424
  Serious: Yes (Other)
  Sender: FDA-Public Use
  Company Number: US-UROGEN PHARMA LTD.-2022-UGN-000006

PATIENT

DRUGS (4)
  1. JELMYTO [Suspect]
     Active Substance: MITOMYCIN
     Indication: Transitional cell cancer of the renal pelvis and ureter
     Dosage: 15 ML MILLILITER (S), ONE TIMES PER WEEK (INSTILLATION)
     Dates: start: 20220112, end: 20220112
  2. JELMYTO [Suspect]
     Active Substance: MITOMYCIN
     Dosage: 15 ML MILLILITER (S), ONE TIMES PER WEEK (INSTILLATION)
     Dates: start: 20220119, end: 20220119
  3. JELMYTO [Suspect]
     Active Substance: MITOMYCIN
     Dosage: 15 ML MILLILITER (S), ONE TIMES PER WEEK (INSTILLATION)
     Dates: start: 20220126, end: 20220126
  4. GEMCITABINE [Concomitant]
     Active Substance: GEMCITABINE
     Indication: Product used for unknown indication
     Dosage: UNK
     Dates: end: 2022

REACTIONS (3)
  - Hydronephrosis [Recovered/Resolved]
  - Ureteric stenosis [Recovered/Resolved]
  - Urinary tract infection [Recovered/Resolved]

NARRATIVE: CASE EVENT DATE: 20220112
